FAERS Safety Report 5314933-5 (Version None)
Quarter: 2007Q2

REPORT INFORMATION
  Report Type: 
  Country: None (occurrence: None)
  Receive Date: 20070426
  Receipt Date: 20070419
  Transmission Date: 20071010
  Serious: Yes (Hospitalization, Other)
  Sender: FDA-Public Use
  Company Number: JPI-P-000978

PATIENT
  Age: 16 Year
  Sex: Male

DRUGS (3)
  1. XYREM [Suspect]
     Indication: CATAPLEXY
     Dosage: SEE IMAGE
     Route: 048
     Dates: start: 20060301
  2. PROVIGIL [Concomitant]
  3. RITALIN [Concomitant]

REACTIONS (4)
  - DEEP VEIN THROMBOSIS [None]
  - MUSCLE INJURY [None]
  - PAIN IN EXTREMITY [None]
  - ROAD TRAFFIC ACCIDENT [None]
